FAERS Safety Report 7057344-7 (Version None)
Quarter: 2010Q4

REPORT INFORMATION
  Report Type: 
  Country: None (occurrence: None)
  Receive Date: 20101022
  Receipt Date: 20101012
  Transmission Date: 20110411
  Serious: Yes (Hospitalization, Disabling)
  Sender: FDA-Public Use
  Company Number: US-SANOFI-AVENTIS-2010SA053612

PATIENT
  Age: 52 Year
  Sex: Female
  Weight: 90.71 kg

DRUGS (5)
  1. AMBIEN CR [Suspect]
     Indication: SLEEP DISORDER
     Route: 048
     Dates: start: 20090620, end: 20090831
  2. LIPITOR [Concomitant]
     Dates: start: 20090301, end: 20090701
  3. CLIMARA DUO [Concomitant]
  4. GLIMEPIRIDE [Concomitant]
     Route: 048
  5. SIMVASTATIN [Concomitant]

REACTIONS (7)
  - ABNORMAL BEHAVIOUR [None]
  - AMNESIA [None]
  - DEPRESSION [None]
  - SCHIZOPHRENIA, PARANOID TYPE [None]
  - SEDATION [None]
  - SUICIDAL IDEATION [None]
  - SUSPICIOUSNESS [None]
